FAERS Safety Report 23063960 (Version 1)
Quarter: 2023Q4

REPORT INFORMATION
  Report Type: Spontaneous
  Country: IN (occurrence: IN)
  Receive Date: 20231013
  Receipt Date: 20231013
  Transmission Date: 20240110
  Serious: Yes (Other)
  Sender: FDA-Public Use
  Company Number: IN-JNJFOC-20231019475

PATIENT
  Age: 48 Year
  Sex: Female

DRUGS (4)
  1. DARZALEX [Suspect]
     Active Substance: DARATUMUMAB
     Indication: Plasma cell leukaemia
     Route: 042
  2. VELCADE [Suspect]
     Active Substance: BORTEZOMIB
     Indication: Plasma cell leukaemia
     Route: 065
  3. CYCLOPHOSPHAMIDE [Suspect]
     Active Substance: CYCLOPHOSPHAMIDE
     Indication: Plasma cell leukaemia
     Route: 065
  4. DEXAMETHASONE [Suspect]
     Active Substance: DEXAMETHASONE
     Indication: Plasma cell leukaemia
     Route: 065

REACTIONS (3)
  - Febrile neutropenia [Unknown]
  - Mucosal inflammation [Unknown]
  - Off label use [Unknown]
